FAERS Safety Report 9526614 (Version 1)
Quarter: 2013Q3

REPORT INFORMATION
  Report Type: Spontaneous
  Country: FR (occurrence: FR)
  Receive Date: 20130916
  Receipt Date: 20130916
  Transmission Date: 20140515
  Serious: Yes (Disabling)
  Sender: FDA-Public Use
  Company Number: PHHY2013FR099059

PATIENT
  Age: 70 Year
  Sex: Female

DRUGS (8)
  1. ATENOLOL SANDOZ [Suspect]
     Dosage: 50 MG, QD
     Route: 048
  2. TENORMINE [Suspect]
     Dosage: 50 MG, QD
     Route: 048
  3. LERCAN [Concomitant]
     Indication: HYPERTENSION
  4. LERCANIDIPINE [Concomitant]
     Indication: HYPERTENSION
  5. COAPROVEL [Concomitant]
     Indication: HYPERTENSION
  6. ARCOXIA [Concomitant]
  7. HYDROCHLOROTHIAZIDE W/IRBESARTAN [Concomitant]
     Indication: HYPERTENSION
  8. TRAMADOL [Concomitant]

REACTIONS (4)
  - Erysipelas [Recovering/Resolving]
  - Skin ulcer [Recovering/Resolving]
  - Impaired healing [Unknown]
  - Staphylococcal skin infection [Unknown]
